FAERS Safety Report 19373678 (Version 4)
Quarter: 2024Q4

REPORT INFORMATION
  Report Type: Spontaneous
  Country: FR (occurrence: FR)
  Receive Date: 20210603
  Receipt Date: 20241220
  Transmission Date: 20250114
  Serious: Yes (Life-Threatening, Hospitalization, Other)
  Sender: ELI LILLY AND COMPANY
  Company Number: FR-002147023-NVSC2020FR241641

PATIENT
  Age: 48 Year
  Sex: Female
  Weight: 173 kg

DRUGS (13)
  1. TRULICITY [Suspect]
     Active Substance: DULAGLUTIDE
     Indication: Diabetes mellitus
     Dosage: 1.5 MG, (18 MAY AT 14 H)
     Route: 058
  2. ALPELISIB [Suspect]
     Active Substance: ALPELISIB
     Indication: PIK3CA-activated mutation
     Dosage: 250 MG, DAILY
     Route: 048
     Dates: start: 20190502
  3. ALPELISIB [Suspect]
     Active Substance: ALPELISIB
     Dosage: 250 MG, DAILY
     Route: 048
     Dates: start: 20200811, end: 20200827
  4. ALPELISIB [Suspect]
     Active Substance: ALPELISIB
     Dosage: 250 MG, DAILY
     Route: 048
     Dates: start: 20200923, end: 20231020
  5. ALPELISIB [Suspect]
     Active Substance: ALPELISIB
     Dosage: UNK UNK, DAILY
     Route: 048
     Dates: start: 20190516, end: 20200807
  6. ARIXTRA [Concomitant]
     Active Substance: FONDAPARINUX SODIUM
     Indication: Product used for unknown indication
     Dosage: 10 OT
     Route: 065
     Dates: start: 20200811, end: 20200826
  7. LYRICA [Concomitant]
     Active Substance: PREGABALIN
     Indication: Pain
     Dosage: 375 MG (START DATE REPORTED AS LONG STANDING)
     Route: 065
  8. HEPARIN [Concomitant]
     Active Substance: HEPARIN SODIUM
     Indication: Coagulopathy
     Dosage: UNK, UNKNOWN
     Route: 065
  9. WARFARIN SODIUM [Concomitant]
     Active Substance: WARFARIN SODIUM
     Indication: Ventricular tachycardia
     Dosage: 6 MG (5 THEN 6)
     Route: 065
     Dates: start: 20200811
  10. ESCITALOPRAM OXALATE [Concomitant]
     Active Substance: ESCITALOPRAM OXALATE
     Indication: Depression
     Dosage: 10 MG (START DATE REPORTED AS LONG STANDING)
     Route: 065
  11. LEVOTHYROXINE [Concomitant]
     Active Substance: LEVOTHYROXINE
     Indication: Hypothyroidism
     Dosage: UNK, (START DATE REPORTED AS LONG STANDING)
     Route: 065
  12. JANUVIA [Concomitant]
     Active Substance: SITAGLIPTIN PHOSPHATE
     Indication: Product used for unknown indication
     Dosage: DOSE: 100 X 1, START DATE REPORTED AS LONG STANDING
     Route: 065
  13. WARFARIN [Concomitant]
     Active Substance: WARFARIN
     Indication: Product used for unknown indication
     Dosage: UNK, UNKNOWN
     Route: 065

REACTIONS (6)
  - Haemoperitoneum [Unknown]
  - Intermenstrual bleeding [Recovered/Resolved]
  - Hyperglycaemia [Not Recovered/Not Resolved]
  - Glycosylated haemoglobin increased [Unknown]
  - Diarrhoea [Recovering/Resolving]
  - Frequent bowel movements [Unknown]

NARRATIVE: CASE EVENT DATE: 20200810
